FAERS Safety Report 7565377-7 (Version None)
Quarter: 2011Q2

REPORT INFORMATION
  Report Type: 
  Country: None (occurrence: None)
  Receive Date: 20110623
  Receipt Date: 20110616
  Transmission Date: 20111010
  Serious: No
  Sender: FDA-Public Use
  Company Number: US-BIOGENIDEC-2011BI010024

PATIENT
  Age: 56 Year
  Sex: Female

DRUGS (7)
  1. NORCO [Concomitant]
     Indication: BACK PAIN
     Dates: start: 20050101
  2. TYSABRI [Suspect]
     Route: 042
     Dates: start: 20050201, end: 20050201
  3. TYSABRI [Suspect]
     Indication: MULTIPLE SCLEROSIS
     Route: 042
     Dates: start: 20100317
  4. TYSABRI [Suspect]
     Route: 042
     Dates: start: 20071129, end: 20081204
  5. METHADONE HCL [Concomitant]
     Indication: PAIN IN EXTREMITY
     Dates: start: 20050101
  6. NORCO [Concomitant]
     Indication: PAIN IN EXTREMITY
     Dates: start: 20050101
  7. METHADONE HCL [Concomitant]
     Indication: BACK PAIN
     Dates: start: 20050101

REACTIONS (8)
  - WEIGHT INCREASED [None]
  - URINARY INCONTINENCE [None]
  - PAIN IN EXTREMITY [None]
  - BACK PAIN [None]
  - JOINT INJURY [None]
  - FRUSTRATION [None]
  - DRUG EFFECT DECREASED [None]
  - MEMORY IMPAIRMENT [None]
